FAERS Safety Report 6831384-2 (Version None)
Quarter: 2010Q2

REPORT INFORMATION
  Report Type: 
  Country: None (occurrence: None)
  Receive Date: 20100520
  Receipt Date: 20090604
  Transmission Date: 20101027
  Serious: Yes (Other)
  Sender: FDA-Public Use
  Company Number: 2009223834

PATIENT
  Age: 56 Year
  Sex: Female

DRUGS (9)
  1. PROVERA [Suspect]
     Indication: HORMONE REPLACEMENT THERAPY
     Dosage: 2.5-10MG, ORAL
     Route: 048
     Dates: start: 19990421, end: 19990621
  2. PROMETRIUM [Suspect]
     Indication: HORMONE REPLACEMENT THERAPY
     Dates: start: 19990722, end: 20000716
  3. ESTRATAB [Suspect]
     Indication: HORMONE REPLACEMENT THERAPY
     Dates: start: 20000516, end: 20001012
  4. ORTHO-PREFEST (ESTRADIOL, NORGESTIMATE) UNKNOWN [Suspect]
     Indication: HORMONE REPLACEMENT THERAPY
     Dates: start: 20001012, end: 20020516
  5. ACTIVELLA [Suspect]
     Indication: HORMONE REPLACEMENT THERAPY
     Dates: start: 20020516, end: 20030120
  6. MEDROXYPROGESTERONE [Suspect]
     Indication: HORMONE REPLACEMENT THERAPY
     Dates: start: 19990520, end: 19990715
  7. EVISTA [Suspect]
     Indication: HORMONE REPLACEMENT THERAPY
     Dates: start: 19990715, end: 20000516
  8. CELEBREX [Concomitant]
  9. PREVACID [Concomitant]

REACTIONS (1)
  - BREAST CANCER FEMALE [None]
